FAERS Safety Report 10220870 (Version 1)
Quarter: 2014Q2

REPORT INFORMATION
  Report Type: Spontaneous
  Country: US (occurrence: None)
  Receive Date: 20140605
  Receipt Date: 20140605
  Transmission Date: 20141212
  Serious: Yes (Life-Threatening)
  Sender: FDA-Public Use
  Company Number: None

PATIENT
  Age: 65 Year
  Sex: Male
  Weight: 92.99 kg

DRUGS (1)
  1. LISINORIL 5MG [Suspect]
     Indication: HYPERTENSION
     Route: 048
     Dates: start: 20140529, end: 20140603

REACTIONS (3)
  - Swelling face [None]
  - Swollen tongue [None]
  - Documented hypersensitivity to administered drug [None]
